FAERS Safety Report 7529196-X (Version None)
Quarter: 2011Q2

REPORT INFORMATION
  Report Type: 
  Country: None (occurrence: None)
  Receive Date: 20110607
  Receipt Date: 20050204
  Transmission Date: 20111010
  Serious: Yes (Death, Other)
  Sender: FDA-Public Use
  Company Number: PHEH2004US13481

PATIENT
  Sex: Male

DRUGS (7)
  1. CLOZARIL [Suspect]
     Indication: SCHIZOAFFECTIVE DISORDER
     Dosage: 600 MG, QD
     Route: 048
  2. MOTRIN [Concomitant]
  3. FEOSOL [Concomitant]
  4. VITAMIN D [Concomitant]
  5. CYTOTEC [Concomitant]
  6. COLACE [Concomitant]
  7. LACTULOSE [Concomitant]

REACTIONS (5)
  - PNEUMONIA [None]
  - PNEUMATOSIS [None]
  - RESPIRATORY FAILURE [None]
  - LUNG INFILTRATION [None]
  - INTESTINAL ISCHAEMIA [None]
